FAERS Safety Report 5574660-6 (Version None)
Quarter: 2007Q4

REPORT INFORMATION
  Report Type: 
  Country: None (occurrence: None)
  Receive Date: 20071227
  Receipt Date: 20071218
  Transmission Date: 20080405
  Serious: Yes (Death)
  Sender: FDA-Public Use
  Company Number: JP-JNJFOC-20070902871

PATIENT
  Sex: Female
  Weight: 44 kg

DRUGS (19)
  1. REMICADE [Suspect]
     Route: 042
  2. REMICADE [Suspect]
     Dosage: 18 INFUSIONS
     Route: 042
  3. REMICADE [Suspect]
     Route: 042
  4. REMICADE [Suspect]
     Route: 042
  5. REMICADE [Suspect]
     Route: 042
  6. REMICADE [Suspect]
     Route: 042
  7. REMICADE [Suspect]
     Route: 042
  8. REMICADE [Suspect]
     Indication: RHEUMATOID ARTHRITIS
     Route: 042
  9. PREDNISOLONE [Suspect]
     Indication: RHEUMATOID ARTHRITIS
     Route: 048
  10. RHEUMATREX [Suspect]
     Indication: RHEUMATOID ARTHRITIS
     Route: 048
  11. GASTER [Suspect]
     Indication: GASTRIC ULCER
     Route: 048
  12. ULCERMIN [Suspect]
     Indication: GASTRIC ULCER
     Route: 048
  13. ISONIAZID [Suspect]
     Indication: ANTIBIOTIC PROPHYLAXIS
     Route: 048
  14. KELNAC [Suspect]
     Indication: DRUG USE FOR UNKNOWN INDICATION
     Route: 048
  15. ALMARL [Suspect]
     Indication: DRUG USE FOR UNKNOWN INDICATION
     Route: 048
  16. ENALAPRIL MALEATE [Suspect]
     Indication: DRUG USE FOR UNKNOWN INDICATION
     Route: 048
  17. FOLIAMIN [Suspect]
     Indication: PROPHYLAXIS
     Route: 048
  18. PANALDINE [Concomitant]
     Indication: RHEUMATOID ARTHRITIS
     Route: 048
  19. MYSLEE [Concomitant]
     Route: 048

REACTIONS (1)
  - T-CELL LYMPHOMA [None]
